FAERS Safety Report 23999414 (Version 2)
Quarter: 2024Q3

REPORT INFORMATION
  Report Type: Report from Study
  Country: US (occurrence: US)
  Receive Date: 20240621
  Receipt Date: 20240705
  Transmission Date: 20241017
  Serious: No
  Sender: BAYER
  Company Number: US-BAYER-2024A089677

PATIENT
  Age: 66 Year
  Sex: Female
  Weight: 90.703 kg

DRUGS (13)
  1. ADEMPAS [Suspect]
     Active Substance: RIOCIGUAT
     Indication: Pulmonary arterial hypertension
     Dosage: UNK
     Dates: start: 20240306
  2. ADEMPAS [Suspect]
     Active Substance: RIOCIGUAT
     Indication: Product used for unknown indication
     Dosage: 2.5 MG, TID
     Route: 048
  3. ADEMPAS [Suspect]
     Active Substance: RIOCIGUAT
     Indication: Pulmonary arterial hypertension
     Dosage: 2 MG, TID
     Route: 048
  4. TREPROSTINIL SODIUM [Suspect]
     Active Substance: TREPROSTINIL SODIUM
     Indication: Pulmonary arterial hypertension
     Dosage: UNK
     Dates: start: 20220301
  5. TREPROSTINIL SODIUM [Suspect]
     Active Substance: TREPROSTINIL SODIUM
     Indication: Pulmonary arterial hypertension
     Dosage: UNK
  6. POTASSIUM CHLORIDE [Concomitant]
     Active Substance: POTASSIUM CHLORIDE
  7. OPSUMIT [Concomitant]
     Active Substance: MACITENTAN
  8. ALBUTEROL SULFATE [Concomitant]
     Active Substance: ALBUTEROL SULFATE
  9. VITAMINS [Concomitant]
     Active Substance: VITAMINS
  10. BUMETANIDE [Concomitant]
     Active Substance: BUMETANIDE
  11. SPIRONOLACTONE [Concomitant]
     Active Substance: SPIRONOLACTONE
  12. Joint health plus [Concomitant]
  13. REMODULIN [Concomitant]
     Active Substance: TREPROSTINIL

REACTIONS (6)
  - Flatulence [Recovered/Resolved]
  - Headache [Recovered/Resolved]
  - Pain [Recovered/Resolved]
  - Abdominal distension [Recovered/Resolved]
  - Nausea [Recovered/Resolved]
  - Intentional product use issue [None]

NARRATIVE: CASE EVENT DATE: 20240610
